FAERS Safety Report 4681802-3 (Version None)
Quarter: 2005Q2

REPORT INFORMATION
  Report Type: 
  Country: None (occurrence: None)
  Receive Date: 20050601
  Receipt Date: 20050519
  Transmission Date: 20051028
  Serious: Yes (Death, Hospitalization, Other)
  Sender: FDA-Public Use
  Company Number: 2005077562

PATIENT
  Age: 69 Year
  Sex: Female
  Weight: 74 kg

DRUGS (6)
  1. FLUCONAZOLE [Suspect]
  2. DOXIL [Suspect]
     Indication: BREAST CANCER
     Dosage: 30MG/M2 INTRAVENOUS
     Route: 042
     Dates: start: 20020318, end: 20020430
  3. TAXOTERE [Suspect]
     Indication: BREAST CANCER
     Dosage: 60MG/M2 INTRAVENOUS
     Route: 042
     Dates: start: 20020318, end: 20020430
  4. TIMENTIN [Suspect]
  5. UNSPECIFIED THERAPEUTIC AGENT (ALL OTHER THERAPEUTIC PRODUCTS) [Suspect]
  6. VITAMIN B6 (VITAMIN B6) [Concomitant]

REACTIONS (17)
  - DISEASE PROGRESSION [None]
  - DISSEMINATED INTRAVASCULAR COAGULATION [None]
  - GENERAL PHYSICAL HEALTH DETERIORATION [None]
  - HYPERKALAEMIA [None]
  - HYPOALBUMINAEMIA [None]
  - HYPOCALCAEMIA [None]
  - HYPOKALAEMIA [None]
  - HYPOMAGNESAEMIA [None]
  - HYPONATRAEMIA [None]
  - HYPOTENSION [None]
  - INTERNATIONAL NORMALISED RATIO INCREASED [None]
  - LIVER DISORDER [None]
  - METABOLIC ACIDOSIS [None]
  - ORAL INTAKE REDUCED [None]
  - PHARYNGITIS [None]
  - STOMATITIS [None]
  - TACHYPNOEA [None]
